FAERS Safety Report 9154625 (Version 1)
Quarter: 2013Q1

REPORT INFORMATION
  Report Type: Spontaneous
  Country: US (occurrence: None)
  Receive Date: 20130308
  Receipt Date: 20130308
  Transmission Date: 20140127
  Serious: Yes (Death, Other)
  Sender: FDA-Public Use
  Company Number: None

PATIENT
  Age: 65 Year
  Sex: Male
  Weight: 104 kg

DRUGS (6)
  1. REVLIMID [Suspect]
     Indication: PLASMA CELL MYELOMA
     Dosage: 15 MG DAILY PO X 28 DAYS
  2. AMBIEN [Concomitant]
  3. ASPIRIN [Concomitant]
  4. PEPCID [Concomitant]
  5. NEURONTIN [Concomitant]
  6. REVLIMID [Concomitant]

REACTIONS (9)
  - Headache [None]
  - Ear pain [None]
  - Nausea [None]
  - Chills [None]
  - Dizziness postural [None]
  - Deafness unilateral [None]
  - Pain [None]
  - Meningitis [None]
  - Sepsis [None]
